FAERS Safety Report 17219278 (Version 1)
Quarter: 2020Q1

REPORT INFORMATION
  Report Type: Spontaneous
  Country: US (occurrence: US)
  Receive Date: 20191230
  Receipt Date: 20191230
  Transmission Date: 20200409
  Serious: No
  Sender: FDA-Public Use
  Company Number: None

PATIENT
  Age: 49 Year
  Sex: Male
  Weight: 72 kg

DRUGS (2)
  1. ONE A DAY PRO EDGE [Concomitant]
  2. RANITIDINE 150 MG TABLET [Suspect]
     Active Substance: RANITIDINE
     Dosage: ?          QUANTITY:30 TABLET(S);?
     Route: 048
     Dates: start: 20190505, end: 20190508

REACTIONS (3)
  - Pruritus [None]
  - Recalled product [None]
  - Rash [None]

NARRATIVE: CASE EVENT DATE: 20190505
